FAERS Safety Report 18080845 (Version 1)
Quarter: 2020Q3

REPORT INFORMATION
  Report Type: Spontaneous
  Country: DE (occurrence: DE)
  Receive Date: 20200728
  Receipt Date: 20200728
  Transmission Date: 20201103
  Serious: Yes (Hospitalization, Other)
  Sender: FDA-Public Use
  Company Number: DE-SUN PHARMACEUTICAL INDUSTRIES LTD-2020RR-255437

PATIENT
  Age: 80 Year
  Sex: Female

DRUGS (21)
  1. DESLORATADINE. [Suspect]
     Active Substance: DESLORATADINE
     Indication: NEURODERMATITIS
     Dosage: 20 MILLIGRAM, DAILY
     Route: 065
  2. GABAPENTIN. [Suspect]
     Active Substance: GABAPENTIN
     Indication: NEURODERMATITIS
     Dosage: 900 MILLIGRAM, DAILY
     Route: 065
  3. MOMETASONE [Suspect]
     Active Substance: MOMETASONE
     Indication: NEURODERMATITIS
     Dosage: 1 MILLIGRAM PER GRAM, UNK
     Route: 061
  4. CETIRIZINE [Suspect]
     Active Substance: CETIRIZINE HYDROCHLORIDE
     Indication: NEURODERMATITIS
     Dosage: 60 MILLIGRAM, DAILY
     Route: 065
  5. HYDROXYZINE [Suspect]
     Active Substance: HYDROXYZINE HYDROCHLORIDE
     Indication: NEURODERMATITIS
     Dosage: 25 MILLIGRAM, DAILY
     Route: 065
  6. BETAMETHASONE VALERATE. [Suspect]
     Active Substance: BETAMETHASONE VALERATE
     Indication: NEURODERMATITIS
     Dosage: 0.5 MILLIGRAM PER GRAM, UNK
     Route: 061
  7. RITUXIMAB. [Suspect]
     Active Substance: RITUXIMAB
     Indication: NEURODERMATITIS
     Dosage: UNK
     Route: 065
  8. NALTREXONE [Suspect]
     Active Substance: NALTREXONE
     Indication: NEURODERMATITIS
     Dosage: 25 MILLIGRAM, DAILY
     Route: 065
  9. PREDNISOLONE. [Suspect]
     Active Substance: PREDNISOLONE
     Indication: NEURODERMATITIS
     Dosage: 40 MILLIGRAM, DAILY
     Route: 048
  10. METHOTREXATE. [Suspect]
     Active Substance: METHOTREXATE
     Indication: NEURODERMATITIS
     Dosage: 10 MILLIGRAM, WEEKLY
     Route: 065
  11. BETAMETHASONE. [Suspect]
     Active Substance: BETAMETHASONE
     Indication: DERMATITIS ATOPIC
     Dosage: UNK
     Route: 061
  12. TACROLIMUS. [Suspect]
     Active Substance: TACROLIMUS
     Indication: NEURODERMATITIS
     Dosage: 1 MILLIGRAM PER GRAM, UNK
     Route: 065
  13. CYCLOSPORINE. [Suspect]
     Active Substance: CYCLOSPORINE
     Indication: NEURODERMATITIS
     Dosage: 300 MILLIGRAM, DAILY
     Route: 065
  14. POLIDOCANOL. [Suspect]
     Active Substance: POLIDOCANOL
     Indication: NEURODERMATITIS
     Dosage: 30 MILLIGRAM PER GRAM, UNK
     Route: 065
  15. BENDAMUSTINE [Suspect]
     Active Substance: BENDAMUSTINE
     Indication: NEURODERMATITIS
     Dosage: UNK
     Route: 065
  16. PIMECROLIMUS. [Suspect]
     Active Substance: PIMECROLIMUS
     Indication: NEURODERMATITIS
     Dosage: 10 MILLIGRAM PER GRAM, UNK
     Route: 065
  17. NALOXONE [Suspect]
     Active Substance: NALOXONE
     Indication: NEURODERMATITIS
     Dosage: 7 CYCLES
     Route: 042
  18. MIRTAZAPINE. [Suspect]
     Active Substance: MIRTAZAPINE
     Indication: NEURODERMATITIS
     Dosage: 15 MILLIGRAM, DAILY
     Route: 065
  19. CLOBETASOL [Suspect]
     Active Substance: CLOBETASOL
     Indication: NEURODERMATITIS
     Dosage: 0.5 MILLIGRAM PER GRAM, UNK
     Route: 061
  20. PREDNICARBATE. [Suspect]
     Active Substance: PREDNICARBATE
     Indication: NEURODERMATITIS
     Dosage: 2.5 MILLIGRAM PER GRAM, UNK
     Route: 061
  21. PAROXETINE. [Suspect]
     Active Substance: PAROXETINE
     Indication: NEURODERMATITIS
     Dosage: 20 MILLIGRAM, DAILY
     Route: 065

REACTIONS (2)
  - Drug ineffective [Unknown]
  - Therapeutic product effect incomplete [Unknown]
